FAERS Safety Report 8202918-0 (Version None)
Quarter: 2012Q1

REPORT INFORMATION
  Report Type: 
  Country: None (occurrence: None)
  Receive Date: 20120312
  Receipt Date: 20120307
  Transmission Date: 20120608
  Serious: Yes (Hospitalization)
  Sender: FDA-Public Use
  Company Number: JP-BAYER-2012-023213

PATIENT
  Age: 31 Year
  Sex: Male

DRUGS (3)
  1. SARIDON [CAFFEINE,PARACETAMOL] [Concomitant]
     Indication: PYREXIA
     Dosage: UNK
     Route: 048
     Dates: start: 20100604
  2. CABAGIN [VITAMIN U] [Concomitant]
     Dosage: UNK
     Route: 048
     Dates: start: 20100604
  3. ASPIRIN [Suspect]
     Indication: PYREXIA
     Dosage: UNK
     Route: 048
     Dates: start: 20100604

REACTIONS (1)
  - HEPATITIS [None]
